FAERS Safety Report 17190219 (Version 1)
Quarter: 2019Q4

REPORT INFORMATION
  Report Type: Spontaneous
  Country: DE (occurrence: DE)
  Receive Date: 20191223
  Receipt Date: 20191223
  Transmission Date: 20200122
  Serious: Yes (Other)
  Sender: FDA-Public Use
  Company Number: DE-TEVA-2019-DE-1154618

PATIENT
  Age: 80 Year
  Sex: Female
  Weight: 83 kg

DRUGS (3)
  1. RAMIPRIL 5 MG [Suspect]
     Active Substance: RAMIPRIL
     Indication: HYPERTENSION
     Dosage: 1-0-1
     Route: 048
  2. CARVEDILOL 25 MG [Concomitant]
     Active Substance: CARVEDILOL
     Indication: HYPERTENSION
     Dosage: 1,5-0-1,5
     Route: 048
  3. EBRANTIL 30 [Interacting]
     Active Substance: URAPIDIL
     Indication: HYPERTENSION
     Dosage: 0-0-1?AS NEEDED WHEN BLOOD PRESSURE IS HIGH
     Route: 048
     Dates: start: 201911, end: 201911

REACTIONS (2)
  - Drug interaction [Recovered/Resolved]
  - Arrhythmia [Recovered/Resolved]

NARRATIVE: CASE EVENT DATE: 201911
